FAERS Safety Report 7400250-6 (Version None)
Quarter: 2011Q2

REPORT INFORMATION
  Report Type: 
  Country: None (occurrence: None)
  Receive Date: 20110407
  Receipt Date: 20110328
  Transmission Date: 20111010
  Serious: Yes (Death)
  Sender: FDA-Public Use
  Company Number: IL-ACTELION-A-CH2011-46765

PATIENT
  Age: 55 Year
  Sex: Male

DRUGS (2)
  1. TRACLEER [Suspect]
     Indication: IDIOPATHIC PULMONARY FIBROSIS
     Dosage: 125 MG, BID
     Route: 048
  2. TRACLEER [Suspect]
     Dosage: 62.5 MG, BID
     Route: 048

REACTIONS (2)
  - IDIOPATHIC PULMONARY FIBROSIS [None]
  - CONDITION AGGRAVATED [None]
